FAERS Safety Report 17819923 (Version 1)
Quarter: 2020Q2

REPORT INFORMATION
  Report Type: Spontaneous
  Country: US (occurrence: US)
  Receive Date: 20200524
  Receipt Date: 20200524
  Transmission Date: 20200714
  Serious: Yes (Other)
  Sender: FDA-Public Use
  Company Number: US-BEH-2020117601

PATIENT
  Sex: Female

DRUGS (1)
  1. HIZENTRA [Suspect]
     Active Substance: HUMAN IMMUNOGLOBULIN G
     Indication: SELECTIVE IGG SUBCLASS DEFICIENCY
     Dosage: 8 GRAM, QW
     Route: 058
     Dates: start: 20171228

REACTIONS (4)
  - Fracture [Unknown]
  - Fall [Unknown]
  - Therapy interrupted [Unknown]
  - No adverse event [Unknown]
